FAERS Safety Report 7519998-8 (Version None)
Quarter: 2011Q2

REPORT INFORMATION
  Report Type: 
  Country: None (occurrence: None)
  Receive Date: 20110602
  Receipt Date: 20110412
  Transmission Date: 20111010
  Serious: Yes (Other)
  Sender: FDA-Public Use
  Company Number: PHHY2011JP30995

PATIENT

DRUGS (3)
  1. MEROPENEM [Suspect]
     Route: 041
     Dates: start: 20110404, end: 20110411
  2. SANDOSTATIN [Suspect]
     Indication: INTESTINAL OBSTRUCTION
     Dosage: 300 UG DAILY
     Route: 058
     Dates: start: 20110404, end: 20110411
  3. LANSOPRAZOLE [Suspect]
     Route: 041
     Dates: start: 20110404, end: 20110411

REACTIONS (1)
  - LIVER FUNCTION TEST ABNORMAL [None]
